FAERS Safety Report 21423335 (Version 1)
Quarter: 2022Q4

REPORT INFORMATION
  Report Type: Spontaneous
  Country: US (occurrence: US)
  Receive Date: 20221007
  Receipt Date: 20221007
  Transmission Date: 20230112
  Serious: Yes (Hospitalization, Other)
  Sender: FDA-Public Use
  Company Number: US-FreseniusKabi-FK202213613

PATIENT
  Sex: Female

DRUGS (4)
  1. XYLOCAINE-MPF [Suspect]
     Active Substance: LIDOCAINE HYDROCHLORIDE
     Indication: Myofascial pain syndrome
     Dosage: DOSE: 5 CC
     Route: 030
     Dates: start: 20220729, end: 20220729
  2. XYLOCAINE-MPF [Suspect]
     Active Substance: LIDOCAINE HYDROCHLORIDE
     Indication: Muscle spasms
  3. BUPIVACAINE [Suspect]
     Active Substance: BUPIVACAINE
     Indication: Muscle spasms
     Dosage: DOSE: 5 CC
     Route: 030
     Dates: start: 20220729, end: 20220729
  4. BUPIVACAINE [Suspect]
     Active Substance: BUPIVACAINE
     Indication: Myofascial pain syndrome

REACTIONS (3)
  - Hypersensitivity [Recovered/Resolved]
  - Off label use [Unknown]
  - Off label use [Unknown]

NARRATIVE: CASE EVENT DATE: 20220729
